FAERS Safety Report 12412989 (Version 1)
Quarter: 2016Q2

REPORT INFORMATION
  Report Type: Spontaneous
  Country: US (occurrence: US)
  Receive Date: 20160527
  Receipt Date: 20160527
  Transmission Date: 20160815
  Serious: Yes (Other)
  Sender: FDA-Public Use
  Company Number: US-DSJP-DSU-2015-133234

PATIENT

DRUGS (5)
  1. LOVASTATIN. [Concomitant]
     Active Substance: LOVASTATIN
     Indication: BLOOD CHOLESTEROL INCREASED
     Dosage: 40 MG, QD
     Dates: start: 2005, end: 2013
  2. HALDOL [Concomitant]
     Active Substance: HALOPERIDOL
     Indication: DEPRESSION
     Dosage: 2 MG, QD
  3. BENICAR [Suspect]
     Active Substance: OLMESARTAN MEDOXOMIL
     Dosage: 20 MG, BID
     Route: 048
     Dates: start: 20110901
  4. INSULIN [Concomitant]
     Active Substance: INSULIN NOS
     Indication: DIABETES MELLITUS
     Dosage: 0.5/30G, UNK
  5. BENICAR [Suspect]
     Active Substance: OLMESARTAN MEDOXOMIL
     Indication: HYPERTENSION
     Dosage: 20 MG, TID
     Dates: start: 2005, end: 2014

REACTIONS (9)
  - Haematuria [Unknown]
  - Dizziness [Unknown]
  - Chronic kidney disease [Not Recovered/Not Resolved]
  - Irritable bowel syndrome [Unknown]
  - Diverticulum intestinal [Unknown]
  - Malabsorption [Not Recovered/Not Resolved]
  - Acute kidney injury [Unknown]
  - Depression [Recovering/Resolving]
  - Hypotension [Unknown]

NARRATIVE: CASE EVENT DATE: 2008
